FAERS Safety Report 7028802-6 (Version None)
Quarter: 2010Q4

REPORT INFORMATION
  Report Type: 
  Country: None (occurrence: None)
  Receive Date: 20101005
  Receipt Date: 20100923
  Transmission Date: 20110411
  Serious: Yes (Other)
  Sender: FDA-Public Use
  Company Number: US-PFIZER INC-2010116682

PATIENT
  Sex: Male

DRUGS (7)
  1. NEURONTIN [Suspect]
     Indication: NEUROPATHY PERIPHERAL
     Dosage: 3 OR 4 OF 600MG TWO TIMES A DAY
     Dates: end: 20100909
  2. NEURONTIN [Suspect]
     Indication: NEURALGIA
  3. NAPROXEN [Suspect]
     Indication: PAIN
     Dosage: UNK
     Dates: end: 20100101
  4. MELOXICAM [Suspect]
     Indication: BACK DISORDER
     Dosage: UNK
     Dates: end: 20100101
  5. VESICARE [Suspect]
     Indication: HYPERTONIC BLADDER
     Dosage: 10 MG, 1X/DAY
     Dates: end: 20100101
  6. TYLENOL [Concomitant]
     Dosage: UNK
  7. IBUPROFEN [Concomitant]
     Dosage: UNK

REACTIONS (3)
  - BALANCE DISORDER [None]
  - HEAD INJURY [None]
  - NEUROPATHY PERIPHERAL [None]
